FAERS Safety Report 24683443 (Version 2)
Quarter: 2025Q1

REPORT INFORMATION
  Report Type: Report from Study
  Country: US (occurrence: US)
  Receive Date: 20241201
  Receipt Date: 20250130
  Transmission Date: 20250408
  Serious: Yes (Other)
  Sender: ABBVIE
  Company Number: US-ABBVIE-6020501

PATIENT
  Age: 89 Year
  Sex: Male

DRUGS (1)
  1. RINVOQ [Suspect]
     Active Substance: UPADACITINIB
     Indication: Dermatitis atopic
     Route: 048
     Dates: start: 20240906

REACTIONS (5)
  - Skin cancer [Unknown]
  - Fall [Unknown]
  - Acne [Unknown]
  - Dementia [Unknown]
  - Asthma [Unknown]

NARRATIVE: CASE EVENT DATE: 20240101
